FAERS Safety Report 17048475 (Version 3)
Quarter: 2020Q1

REPORT INFORMATION
  Report Type: Spontaneous
  Country: US (occurrence: US)
  Receive Date: 20191119
  Receipt Date: 20200103
  Transmission Date: 20200409
  Serious: No
  Sender: FDA-Public Use
  Company Number: US-PFIZER INC-2019497952

PATIENT
  Age: 75 Year
  Sex: Female
  Weight: 56.24 kg

DRUGS (2)
  1. XELJANZ [Suspect]
     Active Substance: TOFACITINIB CITRATE
     Indication: ARTHRITIS
     Dosage: 5 MG, UNK
  2. XELJANZ [Suspect]
     Active Substance: TOFACITINIB CITRATE
     Dosage: 20 MG, UNK

REACTIONS (5)
  - Pain [Recovered/Resolved]
  - Off label use [Unknown]
  - Alopecia [Unknown]
  - Abdominal pain upper [Unknown]
  - Nausea [Unknown]
